FAERS Safety Report 14842517 (Version 2)
Quarter: 2019Q4

REPORT INFORMATION
  Report Type: Report from Study
  Country: DE (occurrence: DE)
  Receive Date: 20180503
  Receipt Date: 20191127
  Transmission Date: 20200122
  Serious: Yes (Death)
  Sender: FDA-Public Use
  Company Number: DE-TEVA-2018-DE-888129

PATIENT
  Age: 26 Year
  Sex: Male

DRUGS (2)
  1. MORPHINE [Suspect]
     Active Substance: MORPHINE
     Route: 065
  2. FLUNITRAZEPAM [Concomitant]
     Active Substance: FLUNITRAZEPAM
     Route: 065

REACTIONS (4)
  - Drug dependence [Fatal]
  - Asphyxia [Fatal]
  - Toxicity to various agents [Fatal]
  - Hyperthermia [Not Recovered/Not Resolved]
